FAERS Safety Report 12349117 (Version 4)
Quarter: 2017Q4

REPORT INFORMATION
  Report Type: Report from Study
  Country: None (occurrence: NL)
  Receive Date: 20160509
  Receipt Date: 20171128
  Transmission Date: 20180320
  Serious: Yes (Other)
  Sender: FDA-Public Use
  Company Number: NL-ABBVIE-16P-114-1621814-00

PATIENT
  Age: 75 Year
  Sex: Female
  Weight: 49 kg

DRUGS (2)
  1. DUODOPA [Suspect]
     Active Substance: CARBIDOPA\LEVODOPA
     Route: 050
  2. DUODOPA [Suspect]
     Active Substance: CARBIDOPA\LEVODOPA
     Indication: PARKINSON^S DISEASE
     Dosage: MORNING DOSE: 10.5?CONTINUOUS DOSE: 4.7?EXTRA DOSE: 2.0
     Route: 050
     Dates: start: 20071022

REACTIONS (18)
  - Asthenia [Not Recovered/Not Resolved]
  - Hyperkinesia [Not Recovered/Not Resolved]
  - Fatigue [Not Recovered/Not Resolved]
  - Haemoglobin decreased [Unknown]
  - Restlessness [Not Recovered/Not Resolved]
  - Gait inability [Not Recovered/Not Resolved]
  - Overdose [Not Recovered/Not Resolved]
  - Parkinson^s disease [Not Recovered/Not Resolved]
  - Hallucination [Not Recovered/Not Resolved]
  - Anger [Not Recovered/Not Resolved]
  - Stoma site hypersensitivity [Recovered/Resolved]
  - Stoma site erythema [Recovered/Resolved]
  - Diarrhoea [Not Recovered/Not Resolved]
  - Stoma site odour [Recovered/Resolved]
  - Drug effect incomplete [Unknown]
  - Social avoidant behaviour [Not Recovered/Not Resolved]
  - Dementia [Not Recovered/Not Resolved]
  - Somnolence [Not Recovered/Not Resolved]

NARRATIVE: CASE EVENT DATE: 20160324
